FAERS Safety Report 16992168 (Version 1)
Quarter: 2019Q4

REPORT INFORMATION
  Report Type: Spontaneous
  Country: US (occurrence: US)
  Receive Date: 20191104
  Receipt Date: 20191104
  Transmission Date: 20200122
  Serious: No
  Sender: FDA-Public Use
  Company Number: None

PATIENT
  Age: 32 Year
  Sex: Female
  Weight: 69.4 kg

DRUGS (1)
  1. PARAGARD T 380A [Suspect]
     Active Substance: COPPER
     Dates: start: 20181011, end: 20191028

REACTIONS (6)
  - Sciatica [None]
  - Anxiety [None]
  - Depression [None]
  - Arthralgia [None]
  - Fatigue [None]
  - Migraine [None]
